FAERS Safety Report 7190227-0 (Version None)
Quarter: 2010Q4

REPORT INFORMATION
  Report Type: 
  Country: None (occurrence: None)
  Receive Date: 20101223
  Receipt Date: 20101215
  Transmission Date: 20110411
  Serious: Yes (Death, Other)
  Sender: FDA-Public Use
  Company Number: US-CELGENEUS-163-21880-07010141

PATIENT
  Age: 85 Year
  Sex: Female
  Weight: 74.5 kg

DRUGS (2)
  1. REVLIMID [Suspect]
     Route: 048
     Dates: start: 20061005, end: 20061030
  2. HYDROXYUREA [Concomitant]
     Indication: THROMBOCYTOSIS
     Route: 065

REACTIONS (4)
  - ACUTE MYELOID LEUKAEMIA [None]
  - BONE MARROW FAILURE [None]
  - DISEASE PROGRESSION [None]
  - HYPOCALCAEMIA [None]
